FAERS Safety Report 21305956 (Version 1)
Quarter: 2022Q3

REPORT INFORMATION
  Report Type: Spontaneous
  Country: US (occurrence: US)
  Receive Date: 20220908
  Receipt Date: 20220908
  Transmission Date: 20221027
  Serious: No
  Sender: FDA-Public Use
  Company Number: US-BRISTOL-MYERS SQUIBB COMPANY-2022-102302

PATIENT
  Age: 70 Year
  Sex: Male

DRUGS (2)
  1. REVLIMID [Suspect]
     Active Substance: LENALIDOMIDE
     Indication: Plasma cell myeloma
     Dosage: FREQ: EVERY DAY FOR 14 DAYS THEN 7 DAYS OFF
     Route: 048
  2. VELCADE [Concomitant]
     Active Substance: BORTEZOMIB
     Indication: Product used for unknown indication
     Route: 065

REACTIONS (1)
  - Off label use [Unknown]
